FAERS Safety Report 6631746-2 (Version None)
Quarter: 2010Q1

REPORT INFORMATION
  Report Type: 
  Country: None (occurrence: None)
  Receive Date: 20100312
  Receipt Date: 20100308
  Transmission Date: 20100710
  Serious: Yes (Life-Threatening, Other)
  Sender: FDA-Public Use
  Company Number: CA-ASTRAZENECA-2010SE10040

PATIENT
  Age: 70 Year
  Sex: Female

DRUGS (3)
  1. BUPIVACAINE HCL [Suspect]
     Indication: SPINAL ANAESTHESIA
     Dosage: 30 ML
     Route: 037
  2. ROPIVACAINE HYDROCHLORIDE [Suspect]
     Indication: NERVE BLOCK
     Dosage: 8 ML/H
     Route: 053
  3. ROPIVACAINE HYDROCHLORIDE [Suspect]
     Dosage: 8 ML/H
     Route: 053

REACTIONS (2)
  - CONVULSION [None]
  - VENTRICULAR TACHYCARDIA [None]
